FAERS Safety Report 19980542 (Version 1)
Quarter: 2021Q4

REPORT INFORMATION
  Report Type: Spontaneous
  Country: US (occurrence: US)
  Receive Date: 20211021
  Receipt Date: 20211021
  Transmission Date: 20220304
  Serious: No
  Sender: FDA-Public Use
  Company Number: US-COVIS PHARMA GMBH-2021COV23814

PATIENT
  Age: 80 Year
  Sex: Male

DRUGS (2)
  1. ALVESCO [Suspect]
     Active Substance: CICLESONIDE
     Indication: Product used for unknown indication
     Dosage: INITIAL DOSAGE WAS TO INHALE 2 PUFFS BY MOUTH TWICE DAILY 80 MCG FOR EACH DOSE.
  2. ALVESCO [Suspect]
     Active Substance: CICLESONIDE
     Dosage: CHANGED TO INHALE 1 PUFF BY MOUTH TWICE DAILY AT 160 MCG

REACTIONS (3)
  - Abnormal dreams [Recovered/Resolved]
  - Fatigue [Recovered/Resolved]
  - Dizziness [Recovered/Resolved]
